FAERS Safety Report 21605896 (Version 1)
Quarter: 2022Q4

REPORT INFORMATION
  Report Type: Spontaneous
  Country: FR (occurrence: FR)
  Receive Date: 20221116
  Receipt Date: 20221116
  Transmission Date: 20230112
  Serious: Yes (Hospitalization)
  Sender: FDA-Public Use
  Company Number: FR-BAXTER-2022BAX022954

PATIENT
  Age: 59 Year
  Sex: Female

DRUGS (3)
  1. OLIMEL [Suspect]
     Active Substance: AMINO ACIDS\DEXTROSE\SOYBEAN OIL
     Indication: Parenteral nutrition
     Dosage: 1.5 L BAG (DOSE AND FREQUENCY NOT REPORTED)
     Route: 042
     Dates: start: 20221025, end: 20221026
  2. CERNEVIT [Suspect]
     Active Substance: VITAMINS
     Indication: Vitamin supplementation
     Dosage: UNK
     Route: 042
     Dates: start: 20221025, end: 20221026
  3. IRON\MINERALS\POTASSIUM IOD\SODIUM FLUORIDE\SODIUM MOLYBDATE\SODIUM SE [Suspect]
     Active Substance: IRON\MINERALS\POTASSIUM IOD\SODIUM FLUORIDE\SODIUM MOLYBDATE\SODIUM SELENITE\ZINC
     Indication: Nutritional supplementation
     Dosage: UNK
     Route: 042
     Dates: start: 20221025, end: 20221026

REACTIONS (4)
  - Breast tenderness [Unknown]
  - Breast enlargement [Unknown]
  - Injection site pain [Unknown]
  - Extravasation [Recovered/Resolved]

NARRATIVE: CASE EVENT DATE: 20221026
